FAERS Safety Report 4937097-6 (Version None)
Quarter: 2006Q1

REPORT INFORMATION
  Report Type: 
  Country: None (occurrence: None)
  Receive Date: 20060307
  Receipt Date: 20060307
  Transmission Date: 20060701
  Serious: Yes (Hospitalization)
  Sender: FDA-Public Use
  Company Number: None

PATIENT
  Age: 79 Year
  Sex: Female
  Weight: 62.1428 kg

DRUGS (7)
  1. ASPIRIN [Suspect]
     Dosage: 81MG PO QD  (DURATION: CHRONIC)
     Route: 048
  2. CALCIUM GLUCONATE [Concomitant]
  3. TYLENOL (CAPLET) [Concomitant]
  4. DETROL [Concomitant]
  5. VIT E [Concomitant]
  6. LIPITOR [Concomitant]
  7. TOPROL [Concomitant]

REACTIONS (6)
  - ABDOMINAL PAIN LOWER [None]
  - DIARRHOEA [None]
  - DYSPEPSIA [None]
  - FAECES DISCOLOURED [None]
  - GASTRIC ULCER [None]
  - WEIGHT DECREASED [None]
